FAERS Safety Report 19232115 (Version 1)
Quarter: 2021Q2

REPORT INFORMATION
  Report Type: Spontaneous
  Country: CN (occurrence: CN)
  Receive Date: 20210507
  Receipt Date: 20210507
  Transmission Date: 20210717
  Serious: Yes (Hospitalization)
  Sender: FDA-Public Use
  Company Number: CN-ASTRAZENECA-2021A395195

PATIENT
  Age: 28020 Day
  Sex: Male
  Weight: 80 kg

DRUGS (2)
  1. BRILINTA [Suspect]
     Active Substance: TICAGRELOR
     Indication: ILL-DEFINED DISORDER
     Route: 048
     Dates: start: 20210405, end: 20210407
  2. BRILINTA [Suspect]
     Active Substance: TICAGRELOR
     Indication: CORONARY ARTERY DISEASE
     Route: 048
     Dates: start: 20210405, end: 20210407

REACTIONS (2)
  - Delirium [Recovering/Resolving]
  - Hyperthermia [Unknown]

NARRATIVE: CASE EVENT DATE: 20210407
